FAERS Safety Report 8537625-8 (Version None)
Quarter: 2012Q3

REPORT INFORMATION
  Report Type: 
  Country: None (occurrence: None)
  Receive Date: 20120713
  Receipt Date: 20120627
  Transmission Date: 20120928
  Serious: Yes (Hospitalization)
  Sender: FDA-Public Use
  Company Number: 2012-002415

PATIENT
  Age: 67 Year
  Sex: Male

DRUGS (16)
  1. ACTONEL [Suspect]
     Dosage: 35 MG, ONCE WEEKLY, ORAL
     Route: 048
     Dates: start: 20120302
  2. CEFTRIAXONE SODIUM [Suspect]
     Indication: SEPTIC SHOCK
     Dosage: 1 DOSE FORM ONCE DAILY, INTRAVENOUS
     Route: 042
     Dates: start: 20120312
  3. BISOPROLOL FUMARATE [Suspect]
     Dosage: 1.25 MG ONCE DAILY, ORAL
     Route: 048
  4. ATORVASTATIN CALCIUM [Suspect]
     Indication: HYPERCHOLESTEROLAEMIA
     Dosage: 40 MG ONCE DAILY, ORAL
     Route: 048
     Dates: start: 20120217
  5. POTASSIUM CHLORIDE [Suspect]
     Indication: HYPOKALAEMIA
     Dosage: 600 MG THREE TIMES DAILY, ORAL
     Route: 048
     Dates: start: 20120217
  6. PREDNISONE TAB [Suspect]
     Indication: ALLERGIC GRANULOMATOUS ANGIITIS
     Dosage: INITIAL DOSE 30MG WITH REDUCTION EVERY 10 DAYS AT THE RATE OF 5MG TO REACH 10MG/DAY, ORAL
     Route: 048
     Dates: start: 20120302
  7. CALCIDOSE (VITAMINE D (CALCIUM CARBONATE, COLECALCIFEROL) [Suspect]
     Indication: OSTEOPOROSIS
     Dosage: 1 DOSE FORM TWICE DAILY, ORAL
     Route: 048
     Dates: start: 20120302
  8. ROVAMYCIN (SPIRAMYCIN) [Suspect]
     Indication: SEPTIC SHOCK
     Dosage: 1 DOSE FORM THREE TIMES DAILY, INTRAVENOUS
     Route: 042
     Dates: start: 20120312, end: 20120316
  9. FUROSEMIDE [Suspect]
     Dosage: 40 MG TWICE DAILY, ORAL
     Route: 048
     Dates: start: 20120217
  10. LYRICA [Suspect]
     Dosage: 25 MG TWICE DAILY, ORAL
     Route: 048
     Dates: start: 20120217
  11. COUMADIN [Suspect]
     Indication: ATRIAL FIBRILLATION
     Dosage: 3.75 MG ONCE DAILY, ORAL UNKNOWN, ORAL
     Route: 048
     Dates: start: 20120322
  12. COUMADIN [Suspect]
     Indication: ATRIAL FIBRILLATION
     Dosage: 3.75 MG ONCE DAILY, ORAL UNKNOWN, ORAL
     Route: 048
     Dates: start: 20050101, end: 20120314
  13. SYMBICORT [Suspect]
     Dosage: 2 PUFFS TWICE DAILY, RESPIRATORY
     Route: 055
  14. VITAMIN B1 AND B6 (PYRIDOXINE, THIAMINE) [Suspect]
     Dosage: 1 DOSE FORM TWICE DAILY, ORAL
     Route: 048
     Dates: start: 20120217
  15. AZATHIOPRINE [Suspect]
     Dosage: 75 MG ONCE DAILY, ORAL
     Route: 048
  16. ALFUZOSIN HYDROCHLORIDE [Suspect]
     Dosage: 10 MG ONCE DAILY, ORAL
     Route: 048
     Dates: start: 20120217

REACTIONS (3)
  - ABDOMINAL PAIN UPPER [None]
  - INTERNATIONAL NORMALISED RATIO INCREASED [None]
  - MUSCLE HAEMORRHAGE [None]
